FAERS Safety Report 9191251 (Version 1)
Quarter: 2013Q1

REPORT INFORMATION
  Report Type: Spontaneous
  Country: US (occurrence: US)
  Receive Date: 20130326
  Receipt Date: 20130326
  Transmission Date: 20140127
  Serious: Yes (Other)
  Sender: FDA-Public Use
  Company Number: US-009507513-2010SP062384

PATIENT
  Sex: Female
  Weight: 63.5 kg

DRUGS (1)
  1. NUVARING [Suspect]
     Indication: CONTRACEPTION
     Dates: start: 20030407, end: 200812

REACTIONS (10)
  - Blindness unilateral [Recovered/Resolved]
  - Breast hyperplasia [Unknown]
  - Retinal vein occlusion [Recovered/Resolved]
  - Thrombosis [Unknown]
  - Fibroadenoma of breast [Not Recovered/Not Resolved]
  - Fibrocystic breast disease [Unknown]
  - Otitis media [Unknown]
  - Cholesteatoma [Unknown]
  - Breast calcifications [Unknown]
  - Labyrinthine fistula [Unknown]
